FAERS Safety Report 14456967 (Version 1)
Quarter: 2018Q1

REPORT INFORMATION
  Report Type: Other
  Country: US (occurrence: US)
  Receive Date: 20180130
  Receipt Date: 20180130
  Transmission Date: 20180509
  Serious: No
  Sender: FDA-Public Use
  Company Number: US-ACORDA-ACO_139632_2017

PATIENT
  Age: 73 Year
  Sex: Female

DRUGS (1)
  1. AMPYRA [Suspect]
     Active Substance: DALFAMPRIDINE
     Indication: PAIN
     Dosage: 10 MG, BID
     Route: 065
     Dates: start: 20170616, end: 20170705

REACTIONS (3)
  - Product use in unapproved indication [Unknown]
  - Pain in extremity [Unknown]
  - Musculoskeletal pain [Unknown]

NARRATIVE: CASE EVENT DATE: 20170616
